FAERS Safety Report 4704388-3 (Version None)
Quarter: 2005Q2

REPORT INFORMATION
  Report Type: 
  Country: None (occurrence: None)
  Receive Date: 20050630
  Receipt Date: 20050624
  Transmission Date: 20051028
  Serious: Yes (Other)
  Sender: FDA-Public Use
  Company Number: CA-GLAXOSMITHKLINE-A0564378A

PATIENT
  Age: 78 Year
  Sex: Female
  Weight: 81.8 kg

DRUGS (5)
  1. AVANDIA [Suspect]
     Dosage: 4MG PER DAY
     Route: 048
  2. METFORMIN [Concomitant]
     Dosage: 500MG THREE TIMES PER DAY
     Route: 048
     Dates: start: 20030221
  3. LIPITOR [Concomitant]
     Dosage: 100MG PER DAY
     Route: 048
     Dates: start: 20030221
  4. GLYBURIDE [Concomitant]
     Dosage: 7.5MG TWICE PER DAY
     Dates: start: 20030221
  5. HYDROCHLOROTHIAZIDE [Concomitant]
     Dosage: 12.5MG PER DAY
     Route: 048
     Dates: start: 20031104

REACTIONS (4)
  - DIFFICULTY IN WALKING [None]
  - GAIT DISTURBANCE [None]
  - NODDING OF HEAD [None]
  - TREMOR [None]
